FAERS Safety Report 12887945 (Version 2)
Quarter: 2017Q3

REPORT INFORMATION
  Report Type: Spontaneous
  Country: FR (occurrence: FR)
  Receive Date: 20161027
  Receipt Date: 20170929
  Transmission Date: 20171127
  Serious: Yes (Life-Threatening, Hospitalization, Other)
  Sender: FDA-Public Use
  Company Number: FR-ASTRAZENECA-2016SF11551

PATIENT
  Age: 22343 Day
  Sex: Female

DRUGS (24)
  1. ACUPAN [Suspect]
     Active Substance: NEFOPAM HYDROCHLORIDE
     Indication: PAIN
     Route: 048
     Dates: start: 20160707
  2. ROSUVASTATIN. [Concomitant]
     Active Substance: ROSUVASTATIN
     Dosage: 10MG/D
  3. FERROUS SULFATE. [Concomitant]
     Active Substance: FERROUS SULFATE
     Dosage: 80 MG/D
  4. INEXIUM IV [Suspect]
     Active Substance: ESOMEPRAZOLE
     Dosage: 80 MG, DAILY
     Route: 042
     Dates: start: 20160906
  5. PREGABALIN. [Concomitant]
     Active Substance: PREGABALIN
     Dosage: 75MG BID
  6. ALPHA-HYDROXYCHOLECALCIFEROL [Concomitant]
     Dosage: 1 MICROG/D
  7. CEFAZOLIN [Suspect]
     Active Substance: CEFAZOLIN
     Indication: ENDOCARDITIS
     Dosage: 2 G TID
     Route: 065
     Dates: start: 20160830
  8. CEFAZOLIN [Suspect]
     Active Substance: CEFAZOLIN
     Indication: ENDOCARDITIS
     Route: 065
     Dates: start: 20160620, end: 20160802
  9. CEFAZOLIN [Suspect]
     Active Substance: CEFAZOLIN
     Indication: ENDOCARDITIS
     Dosage: 1.5G BID
     Route: 065
     Dates: start: 20160830
  10. ONDANSETRON [Suspect]
     Active Substance: ONDANSETRON
     Indication: NAUSEA
     Dosage: 8MGDAILY
     Route: 048
  11. BISOPROLOL [Concomitant]
     Active Substance: BISOPROLOL
     Dosage: 7.5MG/D,
  12. RAMIPRIL. [Concomitant]
     Active Substance: RAMIPRIL
     Dosage: 10 MG/D
  13. INEXIUM IV [Suspect]
     Active Substance: ESOMEPRAZOLE
     Dosage: 40 MG
     Route: 042
     Dates: start: 20160905
  14. CEFAZOLIN [Suspect]
     Active Substance: CEFAZOLIN
     Indication: ENDOCARDITIS
     Dosage: 374 MG/
     Route: 065
     Dates: start: 20160906
  15. CEFAZOLIN [Suspect]
     Active Substance: CEFAZOLIN
     Indication: ENDOCARDITIS
     Dosage: 1G
     Route: 065
     Dates: start: 20160908
  16. LEVOFLOXACIN. [Suspect]
     Active Substance: LEVOFLOXACIN
     Indication: ENDOCARDITIS
     Dosage: 1 INJECTION OF 500 MG
     Route: 042
     Dates: start: 20160905
  17. LEVOFLOXACIN. [Suspect]
     Active Substance: LEVOFLOXACIN
     Indication: ENDOCARDITIS
     Dosage: 125MG IV
     Route: 042
     Dates: start: 20160908
  18. INEXIUM [Suspect]
     Active Substance: ESOMEPRAZOLE
     Indication: PROPHYLAXIS
     Route: 048
  19. FUROSEMIDE. [Concomitant]
     Active Substance: FUROSEMIDE
     Dosage: 40MG BID,
  20. ALLOPURINOL. [Concomitant]
     Active Substance: ALLOPURINOL
     Dosage: 200 MG/D
  21. INSULIN INJECTION, ISOPHANE [Concomitant]
     Active Substance: INSULIN HUMAN
     Dosage: 38IU IN THE MORNING AND 40 IU IN THE EVENING
  22. INSULIN [Concomitant]
     Active Substance: INSULIN NOS
     Dosage: 50 IU IN THE MORNING,27IU AT NOON, 36 IU IN THE EVENING
  23. LEVOFLOXACIN. [Suspect]
     Active Substance: LEVOFLOXACIN
     Indication: ENDOCARDITIS
     Route: 042
     Dates: start: 20160620, end: 20160802
  24. ONDANSETRON [Suspect]
     Active Substance: ONDANSETRON
     Indication: NAUSEA
     Dosage: 8MG FOUR TIMES PER DAY
     Route: 048
     Dates: start: 20160831

REACTIONS (12)
  - Vasculitis necrotising [Recovered/Resolved]
  - Vomiting [Recovered/Resolved]
  - Endocarditis staphylococcal [Recovered/Resolved]
  - Electroencephalogram abnormal [Recovered/Resolved]
  - Cerebral haemorrhage [Recovered/Resolved]
  - Postictal state [Recovered/Resolved]
  - Status epilepticus [Recovered/Resolved]
  - Blood creatinine increased [Recovered/Resolved]
  - Staphylococcal infection [Recovered/Resolved]
  - Brain abscess [Recovered/Resolved]
  - Septic embolus [Recovered/Resolved]
  - Cerebral ischaemia [Recovered/Resolved]

NARRATIVE: CASE EVENT DATE: 20160706
